FAERS Safety Report 7029648-5 (Version None)
Quarter: 2010Q4

REPORT INFORMATION
  Report Type: 
  Country: None (occurrence: None)
  Receive Date: 20101005
  Receipt Date: 20100924
  Transmission Date: 20110411
  Serious: Yes (Other)
  Sender: FDA-Public Use
  Company Number: ES-MERCK-1009ESP00001

PATIENT
  Sex: Male

DRUGS (4)
  1. ISENTRESS [Suspect]
     Route: 065
  2. DARUNAVIR [Suspect]
     Route: 048
  3. EMTRICITABINE AND TENOFOVIR DISOPROXIL FUMARATE [Suspect]
     Route: 048
  4. RITONAVIR [Suspect]
     Route: 048

REACTIONS (3)
  - EOSINOPHILIA [None]
  - HEPATITIS CHOLESTATIC [None]
  - RASH GENERALISED [None]
